FAERS Safety Report 15982485 (Version 2)
Quarter: 2019Q1

REPORT INFORMATION
  Report Type: Spontaneous
  Country: JP (occurrence: JP)
  Receive Date: 20190219
  Receipt Date: 20190314
  Transmission Date: 20190418
  Serious: Yes (Death, Hospitalization)
  Sender: FDA-Public Use
  Company Number: JP-DSJP-DSJ-2019-105723

PATIENT

DRUGS (6)
  1. PREDNISOLONE. [Concomitant]
     Active Substance: PREDNISOLONE
     Dosage: 15 MG
     Route: 065
  2. ISOSORBIDE DINITRATE. [Concomitant]
     Active Substance: ISOSORBIDE DINITRATE
     Dosage: 4 MG
     Route: 065
  3. LANSOPRAZOLE. [Concomitant]
     Active Substance: LANSOPRAZOLE
     Dosage: 15 MG, QD
     Route: 065
  4. LIXIANA OD TABLETS 30MG [Suspect]
     Active Substance: EDOXABAN TOSYLATE
     Indication: ATRIAL FIBRILLATION
     Dosage: 30 MG, QD
     Route: 048
  5. MAGMITT [Concomitant]
     Active Substance: MAGNESIUM OXIDE
     Dosage: 660 MG
     Route: 065
  6. ROZEREM [Concomitant]
     Active Substance: RAMELTEON
     Dosage: 8 MG, QD
     Route: 065

REACTIONS (4)
  - Cellulitis [Unknown]
  - Haemorrhage subcutaneous [Unknown]
  - Pulmonary haemorrhage [Fatal]
  - Peripheral artery occlusion [Fatal]

NARRATIVE: CASE EVENT DATE: 2019
